FAERS Safety Report 16038691 (Version 1)
Quarter: 2019Q1

REPORT INFORMATION
  Report Type: Spontaneous
  Country: US (occurrence: US)
  Receive Date: 20190206
  Receipt Date: 20190206
  Transmission Date: 20190418
  Serious: No
  Sender: FDA-Public Use
  Company Number: None

PATIENT
  Age: 16 Year
  Sex: Male

DRUGS (2)
  1. NUTROPIN [Suspect]
     Active Substance: SOMATROPIN
     Route: 058
     Dates: start: 201810
  2. NOVOFINE-32 DISP NEEDLES [Concomitant]
     Dates: start: 201810

REACTIONS (5)
  - Abdominal pain [None]
  - Hypoglycaemia [None]
  - Abdominal discomfort [None]
  - Dizziness [None]
  - Gluten sensitivity [None]

NARRATIVE: CASE EVENT DATE: 20190206
